FAERS Safety Report 9510300 (Version 2)
Quarter: 2013Q3

REPORT INFORMATION
  Report Type: Spontaneous
  Country: US (occurrence: US)
  Receive Date: 20130909
  Receipt Date: 20130909
  Transmission Date: 20140515
  Serious: Yes (Other)
  Sender: FDA-Public Use
  Company Number: US-BRISTOL-MYERS SQUIBB COMPANY-18701839

PATIENT
  Age: 14 Year
  Sex: Male

DRUGS (5)
  1. ABILIFY TABS 2 MG [Suspect]
     Indication: TACHYPHRENIA
     Dosage: LAST DOSE:03JULY12
     Dates: start: 20120617, end: 20120708
  2. ABILIFY TABS 2 MG [Suspect]
     Indication: MERYCISM
     Dosage: LAST DOSE:03JULY12
     Dates: start: 20120617, end: 20120708
  3. ABILIFY TABS 2 MG [Suspect]
     Indication: ANXIETY
     Dosage: LAST DOSE:03JULY12
     Dates: start: 20120617, end: 20120708
  4. ABILIFY TABS 2 MG [Suspect]
     Indication: AFFECTIVE DISORDER
     Dosage: LAST DOSE:03JULY12
     Dates: start: 20120617, end: 20120708
  5. LORAZEPAM [Concomitant]
     Dates: start: 20120621

REACTIONS (1)
  - Affective disorder [Recovered/Resolved]
